FAERS Safety Report 20025595 (Version 2)
Quarter: 2021Q4

REPORT INFORMATION
  Report Type: Spontaneous
  Country: GB (occurrence: GB)
  Receive Date: 20211102
  Receipt Date: 20211225
  Transmission Date: 20220303
  Serious: Yes (Life-Threatening, Hospitalization, Other)
  Sender: FDA-Public Use
  Company Number: None

PATIENT
  Age: 23 Year
  Sex: Female
  Weight: 58 kg

DRUGS (8)
  1. IMATINIB [Suspect]
     Active Substance: IMATINIB
     Indication: Chronic myeloid leukaemia
     Dosage: 400 MG, QD
     Route: 048
     Dates: start: 20170918, end: 20171224
  2. IMATINIB [Suspect]
     Active Substance: IMATINIB
     Indication: Thrombocytosis
     Route: 065
  3. DASATINIB [Suspect]
     Active Substance: DASATINIB
     Indication: Product used for unknown indication
     Dosage: 50 MG, QD
     Route: 065
  4. DASATINIB [Suspect]
     Active Substance: DASATINIB
     Dosage: UNK
     Route: 065
  5. FERROUS SULFATE [Suspect]
     Active Substance: FERROUS SULFATE
     Indication: Iron deficiency anaemia
     Dosage: UNK
     Route: 065
     Dates: start: 20170823
  6. FLUCLOXACILLIN [Suspect]
     Active Substance: FLUCLOXACILLIN
     Indication: Postoperative wound infection
     Dosage: 500 MG
     Route: 048
     Dates: start: 20171208, end: 20171215
  7. METRONIDAZOLE [Suspect]
     Active Substance: METRONIDAZOLE
     Indication: Postoperative wound infection
     Dosage: 400 MG
     Route: 065
     Dates: start: 20171208, end: 20171215
  8. TACROLIMUS [Concomitant]
     Active Substance: TACROLIMUS
     Indication: Immunosuppression
     Dosage: UNK
     Route: 065

REACTIONS (10)
  - Hepatic failure [Recovered/Resolved with Sequelae]
  - Polyhydramnios [Unknown]
  - Post procedural infection [Unknown]
  - Liver disorder [Unknown]
  - Jaundice [Unknown]
  - Normal newborn [Unknown]
  - Weight increased [Unknown]
  - Vomiting [Not Recovered/Not Resolved]
  - Nausea [Not Recovered/Not Resolved]
  - Maternal exposure during pregnancy [Unknown]

NARRATIVE: CASE EVENT DATE: 20171228
